FAERS Safety Report 22276015 (Version 1)
Quarter: 2023Q2

REPORT INFORMATION
  Report Type: Spontaneous
  Country: US (occurrence: None)
  Receive Date: 20230501
  Receipt Date: 20230501
  Transmission Date: 20230722
  Serious: Yes (Life-Threatening, Hospitalization)
  Sender: FDA-Public Use
  Company Number: None

PATIENT
  Age: 59 Year
  Sex: Male
  Weight: 69.90 kg

DRUGS (2)
  1. DURVALUMAB [Suspect]
     Active Substance: DURVALUMAB
     Indication: Lung adenocarcinoma
     Dosage: 30 ML MONTHLY INTRAVENOUS?
     Route: 042
     Dates: start: 20230314, end: 20230411
  2. DURVALUMAB [Concomitant]
     Active Substance: DURVALUMAB
     Dates: start: 20230314, end: 20230417

REACTIONS (3)
  - Confusional state [None]
  - Pneumonitis [None]
  - Atrial fibrillation [None]

NARRATIVE: CASE EVENT DATE: 20230314
